FAERS Safety Report 9897712 (Version 1)
Quarter: 2014Q1

REPORT INFORMATION
  Report Type: Spontaneous
  Country: JP (occurrence: JP)
  Receive Date: 20140214
  Receipt Date: 20140214
  Transmission Date: 20141002
  Serious: Yes (Other)
  Sender: FDA-Public Use
  Company Number: JP-AMGEN-JPNSP2014010445

PATIENT
  Sex: Male

DRUGS (1)
  1. RANMARK [Suspect]
     Indication: RESORPTION BONE INCREASED
     Dosage: 120 MG, UNK
     Route: 058

REACTIONS (1)
  - Osteonecrosis of jaw [Not Recovered/Not Resolved]
